FAERS Safety Report 25614028 (Version 1)
Quarter: 2025Q3

REPORT INFORMATION
  Report Type: Report from Study
  Country: EU (occurrence: EU)
  Receive Date: 20250728
  Receipt Date: 20250728
  Transmission Date: 20251021
  Serious: Yes (Death, Hospitalization)
  Sender: PFIZER
  Company Number: EU-ROCHE-10000342122

PATIENT
  Age: 60 Year
  Sex: Male

DRUGS (4)
  1. CARBOPLATIN [Suspect]
     Active Substance: CARBOPLATIN
     Indication: Non-small cell lung cancer metastatic
     Dates: start: 20210503
  2. ATEZOLIZUMAB [Suspect]
     Active Substance: ATEZOLIZUMAB
     Indication: Non-small cell lung cancer metastatic
     Dosage: ON 05JUL2021, PT RECEIVED THE MOST RECENT DOSE (1200 MG) OF STUDY DRUG PRIOR TO AE/SAE
     Route: 042
     Dates: start: 20210503
  3. ETOPOSIDE [Suspect]
     Active Substance: ETOPOSIDE
     Indication: Non-small cell lung cancer metastatic
     Route: 042
     Dates: start: 20210503
  4. FENTANYL [Concomitant]
     Active Substance: FENTANYL
     Indication: Prophylaxis

REACTIONS (1)
  - Neutropenia [Fatal]

NARRATIVE: CASE EVENT DATE: 20210714
